FAERS Safety Report 5219288-2 (Version None)
Quarter: 2007Q1

REPORT INFORMATION
  Report Type: 
  Country: None (occurrence: None)
  Receive Date: 20070125
  Receipt Date: 20070117
  Transmission Date: 20070707
  Serious: Yes (Death, Hospitalization, Other)
  Sender: FDA-Public Use
  Company Number: US-JNJFOC-20050703829

PATIENT
  Sex: Female

DRUGS (24)
  1. DURAGESIC-100 [Suspect]
     Route: 062
  2. DURAGESIC-100 [Suspect]
     Route: 062
  3. DURAGESIC-100 [Suspect]
     Route: 062
  4. DURAGESIC-100 [Suspect]
     Route: 062
  5. DURAGESIC-100 [Suspect]
     Route: 062
  6. DURAGESIC-100 [Suspect]
     Route: 062
  7. DURAGESIC-100 [Suspect]
     Route: 062
  8. DURAGESIC-100 [Suspect]
     Route: 062
  9. DURAGESIC-100 [Suspect]
     Route: 062
  10. DURAGESIC-100 [Suspect]
     Route: 062
  11. DURAGESIC-100 [Suspect]
     Indication: PAIN
     Route: 062
  12. SIMETHICONE [Concomitant]
     Indication: DRUG USE FOR UNKNOWN INDICATION
  13. QUETIAPINE FUMARATE [Concomitant]
     Indication: DRUG USE FOR UNKNOWN INDICATION
  14. ESCITALOPRAM OXALATE [Concomitant]
     Indication: DRUG USE FOR UNKNOWN INDICATION
  15. OXYCODONE HCL [Concomitant]
     Indication: DRUG USE FOR UNKNOWN INDICATION
  16. ALPRAZOLAM [Concomitant]
     Indication: DRUG USE FOR UNKNOWN INDICATION
  17. ONDANSETRON [Concomitant]
     Indication: DRUG USE FOR UNKNOWN INDICATION
  18. MEPERIDINE HCL [Concomitant]
     Indication: DRUG USE FOR UNKNOWN INDICATION
  19. DEXTROAMPHETAMINE [Concomitant]
     Indication: DRUG USE FOR UNKNOWN INDICATION
  20. GABAPENTIN [Concomitant]
     Indication: DRUG USE FOR UNKNOWN INDICATION
  21. MODAFINIL [Concomitant]
     Indication: DRUG USE FOR UNKNOWN INDICATION
  22. TEGASEROD [Concomitant]
     Indication: DRUG USE FOR UNKNOWN INDICATION
  23. HYDROCORTISONE [Concomitant]
     Indication: DRUG USE FOR UNKNOWN INDICATION
     Route: 061
  24. ACETAMINOPHEN [Concomitant]
     Indication: DRUG USE FOR UNKNOWN INDICATION

REACTIONS (34)
  - ABDOMINAL PAIN [None]
  - APPLICATION SITE PUSTULES [None]
  - APPLICATION SITE RASH [None]
  - BIPOLAR DISORDER [None]
  - BREAST DISCHARGE [None]
  - BREAST TENDERNESS [None]
  - CEREBROVASCULAR ACCIDENT [None]
  - CONSTIPATION [None]
  - DEHYDRATION [None]
  - DEPRESSION [None]
  - DEVICE LEAKAGE [None]
  - DRUG ABUSER [None]
  - DRUG DEPENDENCE [None]
  - DRUG TOXICITY [None]
  - EAR PAIN [None]
  - FATIGUE [None]
  - HAEMATEMESIS [None]
  - HEADACHE [None]
  - HIATUS HERNIA [None]
  - HYPOKALAEMIA [None]
  - ILEUS [None]
  - MIGRAINE [None]
  - MIXED CONNECTIVE TISSUE DISEASE [None]
  - POST-TRAUMATIC STRESS DISORDER [None]
  - PULMONARY OEDEMA [None]
  - RASH [None]
  - ROAD TRAFFIC ACCIDENT [None]
  - SINUSITIS [None]
  - SKIN LESION [None]
  - SOMNOLENCE [None]
  - SUICIDAL IDEATION [None]
  - SYNCOPE [None]
  - VOMITING [None]
  - WHITE BLOOD CELL COUNT DECREASED [None]
